FAERS Safety Report 9799501 (Version 1)
Quarter: 2013Q4

REPORT INFORMATION
  Report Type: Spontaneous
  Country: US (occurrence: None)
  Receive Date: 20131231
  Receipt Date: 20131231
  Transmission Date: 20140711
  Serious: Yes (Other)
  Sender: FDA-Public Use
  Company Number: 2013P1022171

PATIENT
  Age: 24 Year
  Sex: Female

DRUGS (3)
  1. DEXAMETHASONE [Suspect]
     Indication: ADRENOGENITAL SYNDROME
  2. FLUOXETINE [Concomitant]
  3. UNSPECIFIED CONTRACEPTIVE [Concomitant]

REACTIONS (2)
  - Hepatic steatosis [None]
  - Hepatitis [None]
